FAERS Safety Report 9185133 (Version 2)
Quarter: 2013Q1

REPORT INFORMATION
  Report Type: Report from Study
  Country: JP (occurrence: JP)
  Receive Date: 20130325
  Receipt Date: 20130329
  Transmission Date: 20140127
  Serious: Yes (Other)
  Sender: FDA-Public Use
  Company Number: JP-009507513-1303JPN010777

PATIENT
  Age: 52 Year
  Sex: Male
  Weight: 87 kg

DRUGS (13)
  1. PEGINTRON [Suspect]
     Indication: CHRONIC HEPATITIS C
     Dosage: 1.0 UG/KG/WEEK
     Route: 058
     Dates: start: 20120919
  2. PEGINTRON [Suspect]
     Dosage: 1.0 UG/KG/WEEK
     Route: 058
     Dates: start: 20120926
  3. PEGINTRON [Suspect]
     Dosage: 1.5 UG/KG/WEEK
     Route: 058
     Dates: start: 20120926
  4. PEGINTRON [Suspect]
     Dosage: 1.0 UG/KG/WEEK
     Route: 058
     Dates: start: 20121219, end: 20130213
  5. PEGINTRON [Suspect]
     Dosage: UNK
  6. REBETOL [Suspect]
     Indication: CHRONIC HEPATITIS C
     Dosage: 500 MG, QD
     Route: 048
     Dates: start: 20120919, end: 201209
  7. REBETOL [Suspect]
     Dosage: 200 MG, QD
     Route: 048
     Dates: start: 20121107
  8. REBETOL [Suspect]
     Dosage: 400 MG, QD
     Route: 048
     Dates: start: 20121219, end: 20130213
  9. TELAVIC [Suspect]
     Indication: CHRONIC HEPATITIS C
     Dosage: 1500 MG, QD
     Route: 048
     Dates: start: 20120919
  10. NEORAL [Concomitant]
     Indication: PROPHYLAXIS
     Dosage: 25 MG, QD,POR
     Route: 048
  11. NEORAL [Concomitant]
     Dosage: 100 MG, QD,POR
     Route: 048
  12. CELLCEPT [Concomitant]
     Indication: PROPHYLAXIS
     Dosage: 1000 MG, QD
     Route: 048
  13. CELLCEPT [Concomitant]
     Dosage: 2000 MG, QD
     Route: 048

REACTIONS (1)
  - Autoimmune hepatitis [Recovered/Resolved]
